FAERS Safety Report 10233089 (Version 3)
Quarter: 2014Q3

REPORT INFORMATION
  Report Type: Spontaneous
  Country: US (occurrence: US)
  Receive Date: 20140612
  Receipt Date: 20140818
  Transmission Date: 20150326
  Serious: No
  Sender: FDA-Public Use
  Company Number: US-BAYER-2014-081643

PATIENT
  Age: 81 Year
  Sex: Female

DRUGS (3)
  1. ADEMPAS [Suspect]
     Active Substance: RIOCIGUAT
     Indication: PULMONARY HYPERTENSION
     Dosage: 0.5 MG, BID
     Route: 048
  2. ADEMPAS [Suspect]
     Active Substance: RIOCIGUAT
     Indication: PULMONARY HYPERTENSION
     Dosage: 0.5 MG, TID (APPROX. 1 WEEK AGO)
     Route: 048
     Dates: start: 20140516
  3. ADEMPAS [Suspect]
     Active Substance: RIOCIGUAT
     Indication: PULMONARY HYPERTENSION
     Dosage: 0.5 MG, TID
     Dates: start: 20140712

REACTIONS (9)
  - Abdominal pain [None]
  - Vomiting [None]
  - Diarrhoea [Unknown]
  - Nausea [Unknown]
  - Fatigue [None]
  - Abdominal pain upper [Unknown]
  - Rash macular [Unknown]
  - Oedema [None]
  - Abdominal discomfort [None]

NARRATIVE: CASE EVENT DATE: 20140516
